FAERS Safety Report 8595889-9 (Version None)
Quarter: 2012Q3

REPORT INFORMATION
  Report Type: 
  Country: None (occurrence: None)
  Receive Date: 20120815
  Receipt Date: 20120810
  Transmission Date: 20120928
  Serious: Yes (Hospitalization, Disabling)
  Sender: FDA-Public Use
  Company Number: IT-ROCHE-1100027

PATIENT
  Age: 57 Year
  Sex: Female

DRUGS (5)
  1. NEXIUM [Concomitant]
     Dates: start: 20120705
  2. ZELBORAF [Suspect]
     Indication: METASTATIC MALIGNANT MELANOMA
     Dosage: LAST DOSE PRIOR TO SAE 20 JUN 2012
     Route: 048
     Dates: start: 20111026, end: 20120621
  3. ACETAMINOPHEN [Concomitant]
     Dates: start: 20120705, end: 20120708
  4. ZELBORAF [Suspect]
     Route: 048
     Dates: start: 20120707
  5. ZITHROMAX [Concomitant]
     Dates: start: 20120705, end: 20120708

REACTIONS (1)
  - DYSPHAGIA [None]
